FAERS Safety Report 7818193-2 (Version None)
Quarter: 2011Q4

REPORT INFORMATION
  Report Type: 
  Country: None (occurrence: None)
  Receive Date: 20111017
  Receipt Date: 20111004
  Transmission Date: 20120403
  Serious: Yes (Other)
  Sender: FDA-Public Use
  Company Number: PHHY2011BR88671

PATIENT
  Age: 28 Year
  Sex: Female
  Weight: 65 kg

DRUGS (7)
  1. ATENOLOL [Suspect]
     Indication: BLOOD PRESSURE
     Dosage: 100 MG,
  2. FUROSEMIDE [Suspect]
     Indication: BLOOD PRESSURE
     Dosage: 40 MG,
  3. LOSARTAN POTASSIUM [Suspect]
     Indication: BLOOD PRESSURE
     Dosage: 100 MG, UNK
  4. HYDROXYCHLOROQUINE SULFATE [Suspect]
     Indication: RHEUMATOID ARTHRITIS
     Dosage: 400 MG,
  5. RASILEZ [Suspect]
     Indication: PROTEINURIA
     Dosage: 300 MG,
  6. RASILEZ [Suspect]
     Indication: BLOOD PRESSURE
  7. AMLODIPINE [Suspect]
     Dosage: 10 MG,

REACTIONS (7)
  - GLOMERULAR FILTRATION RATE DECREASED [None]
  - FOCAL SEGMENTAL GLOMERULOSCLEROSIS [None]
  - RENAL IMPAIRMENT [None]
  - PROTEINURIA [None]
  - OEDEMA PERIPHERAL [None]
  - BLOOD PRESSURE INCREASED [None]
  - CREATININE RENAL CLEARANCE DECREASED [None]
